FAERS Safety Report 16460258 (Version 2)
Quarter: 2019Q3

REPORT INFORMATION
  Report Type: Spontaneous
  Country: JP (occurrence: JP)
  Receive Date: 20190620
  Receipt Date: 20190719
  Transmission Date: 20191004
  Serious: Yes (Hospitalization)
  Sender: FDA-Public Use
  Company Number: JP-MYE-2019M1055883AA

PATIENT
  Age: 78 Year
  Sex: Male

DRUGS (3)
  1. BACTRAMIN [Concomitant]
     Active Substance: SULFAMETHOXAZOLE\TRIMETHOPRIM
     Indication: INFECTION PROPHYLAXIS
     Dosage: 1 DOSAGE FORM, QD
     Route: 048
     Dates: start: 20180117, end: 20190612
  2. PREDONINE [Concomitant]
     Active Substance: PREDNISOLONE
     Indication: AUTOIMMUNE HAEMOLYTIC ANAEMIA
     Dosage: 15 MILLIGRAM, QD
     Route: 048
     Dates: start: 20180117
  3. ERYTHROCIN STEARATE [Suspect]
     Active Substance: ERYTHROMYCIN STEARATE
     Indication: LUNG DISORDER
     Dosage: 400 MILLIGRAM, QD
     Route: 048
     Dates: end: 20190612

REACTIONS (2)
  - Disease progression [Not Recovered/Not Resolved]
  - Autoimmune haemolytic anaemia [Not Recovered/Not Resolved]

NARRATIVE: CASE EVENT DATE: 20181226
